FAERS Safety Report 18441716 (Version 1)
Quarter: 2020Q4

REPORT INFORMATION
  Report Type: Spontaneous
  Country: GB (occurrence: GB)
  Receive Date: 20201029
  Receipt Date: 20201029
  Transmission Date: 20210114
  Serious: Yes (Life-Threatening)
  Sender: FDA-Public Use
  Company Number: GB-TEVA-2020-GB-1841841

PATIENT
  Age: 66 Year
  Sex: Male
  Weight: 58.3 kg

DRUGS (9)
  1. AMITRIPTYLINE [Concomitant]
     Active Substance: AMITRIPTYLINE
  2. OMEPRAZOLE. [Suspect]
     Active Substance: OMEPRAZOLE
     Dosage: 40MG
     Route: 048
     Dates: end: 20200921
  3. TRELEGY ELLIPTA [Concomitant]
     Active Substance: FLUTICASONE FUROATE\UMECLIDINIUM BROMIDE\VILANTEROL TRIFENATATE
  4. SERTRALINE [Concomitant]
     Active Substance: SERTRALINE HYDROCHLORIDE
  5. AMOXICILLIN. [Concomitant]
     Active Substance: AMOXICILLIN
  6. SALBUTAMOL [Concomitant]
     Active Substance: ALBUTEROL
  7. THIAMINE. [Concomitant]
     Active Substance: THIAMINE
  8. CLARITHROMYCIN. [Concomitant]
     Active Substance: CLARITHROMYCIN
  9. QUININE SULFATE. [Concomitant]
     Active Substance: QUININE SULFATE

REACTIONS (2)
  - Atrial fibrillation [Unknown]
  - Hypomagnesaemia [Recovered/Resolved with Sequelae]
